FAERS Safety Report 6216595-1 (Version None)
Quarter: 2009Q2

REPORT INFORMATION
  Report Type: 
  Country: None (occurrence: None)
  Receive Date: 20090605
  Receipt Date: 20090526
  Transmission Date: 20091009
  Serious: Yes (Other)
  Sender: FDA-Public Use
  Company Number: PHHY2009BR20898

PATIENT
  Sex: Male
  Weight: 90 kg

DRUGS (1)
  1. TRILEPTAL [Suspect]
     Dosage: 0.5 DF, QHS
     Route: 048
     Dates: start: 20090525, end: 20090529

REACTIONS (7)
  - BLOOD PRESSURE INCREASED [None]
  - CYANOSIS [None]
  - FEELING COLD [None]
  - FEELING HOT [None]
  - OBSESSIVE-COMPULSIVE DISORDER [None]
  - PARAESTHESIA [None]
  - TACHYCARDIA [None]
